FAERS Safety Report 9694468 (Version 3)
Quarter: 2019Q1

REPORT INFORMATION
  Report Type: Other
  Country: CA (occurrence: CA)
  Receive Date: 20131118
  Receipt Date: 20190125
  Transmission Date: 20190418
  Serious: Yes (Hospitalization)
  Sender: FDA-Public Use
  Company Number: CA-ACORDA-ACO_100449_2013

PATIENT
  Age: 48 Year
  Sex: Female

DRUGS (2)
  1. FAMPYRA [Suspect]
     Active Substance: DALFAMPRIDINE
     Dosage: UNK
     Route: 048
     Dates: start: 20141212
  2. FAMPYRA [Suspect]
     Active Substance: DALFAMPRIDINE
     Indication: GAIT DISTURBANCE
     Dosage: 10 MG, BID
     Route: 002
     Dates: start: 20120904, end: 20131028

REACTIONS (4)
  - Multiple sclerosis [Not Recovered/Not Resolved]
  - Diabetes mellitus [Recovered/Resolved]
  - Urosepsis [Recovered/Resolved]
  - Drug ineffective [Unknown]

NARRATIVE: CASE EVENT DATE: 20131017
